FAERS Safety Report 7982173-7 (Version None)
Quarter: 2011Q4

REPORT INFORMATION
  Report Type: 
  Country: None (occurrence: None)
  Receive Date: 20111212
  Receipt Date: 20111129
  Transmission Date: 20120403
  Serious: Yes (Hospitalization, Other)
  Sender: FDA-Public Use
  Company Number: 2009AL002151

PATIENT
  Age: 88 Year
  Sex: Female
  Weight: 105.2345 kg

DRUGS (30)
  1. DIGOXIN [Suspect]
     Dosage: 0.25 MG;PO
     Route: 048
     Dates: start: 20060616, end: 20080512
  2. NORVASC [Concomitant]
  3. METOPROLOL TARTRATE [Concomitant]
  4. ZOSTAVAX [Concomitant]
  5. CLAFORAN [Concomitant]
  6. VITAMIN TAB [Concomitant]
  7. MAGNESIUM [Concomitant]
  8. LYRICA [Concomitant]
  9. CARVEDILOL [Concomitant]
  10. FERO-FOLIC [Concomitant]
  11. PRAVASTATIN [Concomitant]
  12. AMITIZA [Concomitant]
  13. KEFLEX [Concomitant]
  14. LEVAQUIN [Concomitant]
  15. ASPIRIN [Concomitant]
  16. MIRTAZAPINE [Concomitant]
  17. ERYTHROMYCIN [Concomitant]
  18. LEVOTHYROXINE SODIUM [Concomitant]
  19. LYRICA [Concomitant]
  20. CLINDAMYCIN [Concomitant]
  21. POTASSIUM CHLORIDE [Concomitant]
  22. RAMIPRIL [Concomitant]
  23. ZOSTAVAX [Concomitant]
  24. COMBIVENT [Concomitant]
  25. LASIX [Concomitant]
  26. ZESTRIL [Concomitant]
  27. METFORMIN HCL [Concomitant]
  28. CARTIA XT [Concomitant]
  29. FUROSEMIDE [Concomitant]
  30. PEPCID [Concomitant]

REACTIONS (52)
  - CEREBRAL INFARCTION [None]
  - LUNG NEOPLASM [None]
  - PULMONARY VALVE INCOMPETENCE [None]
  - ANGIODYSPLASIA [None]
  - DYSPNOEA [None]
  - HYPOTHYROIDISM [None]
  - SMALL INTESTINAL HAEMORRHAGE [None]
  - FAMILY STRESS [None]
  - RENAL IMPAIRMENT [None]
  - NAUSEA [None]
  - ATELECTASIS [None]
  - COLECTOMY [None]
  - GASTRITIS [None]
  - DIVERTICULUM [None]
  - MITRAL VALVE DISEASE [None]
  - RIGHT ATRIAL DILATATION [None]
  - PNEUMONIA [None]
  - BLOOD GLUCOSE INCREASED [None]
  - BLOOD TRIGLYCERIDES INCREASED [None]
  - SOCIAL PROBLEM [None]
  - LEFT ATRIAL DILATATION [None]
  - HAEMORRHAGE [None]
  - HYPOAESTHESIA [None]
  - EXTRASYSTOLES [None]
  - HAEMORRHOIDS [None]
  - CHEST WALL MASS [None]
  - PAIN [None]
  - ECONOMIC PROBLEM [None]
  - PULMONARY OEDEMA [None]
  - TRICUSPID VALVE INCOMPETENCE [None]
  - CARDIOACTIVE DRUG LEVEL BELOW THERAPEUTIC [None]
  - MITRAL VALVE CALCIFICATION [None]
  - MITRAL VALVE INCOMPETENCE [None]
  - AORTIC VALVE STENOSIS [None]
  - HAEMOGLOBIN DECREASED [None]
  - ANAEMIA [None]
  - NEPHROLITHIASIS [None]
  - MULTIPLE INJURIES [None]
  - ANHEDONIA [None]
  - AORTIC VALVE CALCIFICATION [None]
  - ASTHENIA [None]
  - TRANSIENT ISCHAEMIC ATTACK [None]
  - ATRIAL FIBRILLATION [None]
  - BLOOD CHOLESTEROL INCREASED [None]
  - DIZZINESS [None]
  - ANORECTAL DISORDER [None]
  - ARTHRITIS [None]
  - TONGUE DISORDER [None]
  - LIP SWELLING [None]
  - OEDEMA PERIPHERAL [None]
  - URINARY TRACT INFECTION [None]
  - LIPOMA [None]
